FAERS Safety Report 10614624 (Version 1)
Quarter: 2014Q4

REPORT INFORMATION
  Report Type: Spontaneous
  Country: PH (occurrence: PH)
  Receive Date: 20141130
  Receipt Date: 20141130
  Transmission Date: 20150529
  Serious: Yes (Hospitalization)
  Sender: FDA-Public Use
  Company Number: PH-BRISTOL-MYERS SQUIBB COMPANY-21639729

PATIENT
  Age: 84 Year
  Sex: Female

DRUGS (8)
  1. ELIQUIS [Suspect]
     Active Substance: APIXABAN
  2. TRADJENTA [Concomitant]
     Active Substance: LINAGLIPTIN
  3. ATORVASTATIN [Concomitant]
     Active Substance: ATORVASTATIN
  4. IMDUR [Concomitant]
     Active Substance: ISOSORBIDE MONONITRATE
  5. TRIMETAZIDINE [Concomitant]
     Active Substance: TRIMETAZIDINE
  6. NICORANDIL [Concomitant]
     Active Substance: NICORANDIL
  7. FEBUXOSTAT. [Concomitant]
     Active Substance: FEBUXOSTAT
  8. TAMBOCOR [Concomitant]
     Active Substance: FLECAINIDE ACETATE

REACTIONS (7)
  - Atrial fibrillation [Unknown]
  - Arteriovenous fistula occlusion [Unknown]
  - Thromboembolectomy [Unknown]
  - Peripheral ischaemia [Unknown]
  - Thrombosis [Unknown]
  - Transient ischaemic attack [Unknown]
  - Hypoaesthesia [Unknown]

NARRATIVE: CASE EVENT DATE: 20141101
